FAERS Safety Report 7344042-5 (Version None)
Quarter: 2011Q1

REPORT INFORMATION
  Report Type: 
  Country: None (occurrence: None)
  Receive Date: 20110310
  Receipt Date: 20100511
  Transmission Date: 20110831
  Serious: No
  Sender: FDA-Public Use
  Company Number: A0859109A

PATIENT
  Age: 61 Year
  Sex: Male

DRUGS (1)
  1. NICORETTE (MINT) [Suspect]
     Dates: start: 20100511, end: 20100511

REACTIONS (1)
  - DYSGEUSIA [None]
